FAERS Safety Report 6383612-8 (Version None)
Quarter: 2009Q3

REPORT INFORMATION
  Report Type: 
  Country: None (occurrence: None)
  Receive Date: 20090928
  Receipt Date: 20090916
  Transmission Date: 20100115
  Serious: Yes (Life-Threatening, Other)
  Sender: FDA-Public Use
  Company Number: CIR-UK-290-09

PATIENT
  Age: 49 Year
  Sex: Female

DRUGS (4)
  1. CIRCADIN (MELATONIN) (MELATONIN) [Suspect]
     Indication: INSOMNIA
     Dosage: UNK, ORAL
     Route: 048
     Dates: start: 20090804, end: 20090806
  2. VALPROATE SODIUM [Concomitant]
  3. OLANZAPINE [Concomitant]
  4. ZOLPIDEM [Concomitant]

REACTIONS (1)
  - GRAND MAL CONVULSION [None]
